FAERS Safety Report 19529370 (Version 3)
Quarter: 2021Q3

REPORT INFORMATION
  Report Type: Spontaneous
  Country: US (occurrence: US)
  Receive Date: 20210713
  Receipt Date: 20210816
  Transmission Date: 20211014
  Serious: Yes (Other)
  Sender: FDA-Public Use
  Company Number: US-MYOVANT SCIENCES GMBH-2021MYSCI0600237

PATIENT
  Sex: Male

DRUGS (1)
  1. ORGOVYX [Suspect]
     Active Substance: RELUGOLIX
     Indication: PROSTATE CANCER
     Dosage: 120 MILLIGRAM, QD
     Route: 048

REACTIONS (3)
  - Therapy interrupted [Recovered/Resolved]
  - Urinary tract obstruction [Recovered/Resolved]
  - Feeling abnormal [Not Recovered/Not Resolved]
